FAERS Safety Report 5196949-5 (Version None)
Quarter: 2006Q4

REPORT INFORMATION
  Report Type: 
  Country: None (occurrence: None)
  Receive Date: 20061227
  Receipt Date: 20061215
  Transmission Date: 20070319
  Serious: Yes (Hospitalization, Other)
  Sender: FDA-Public Use
  Company Number: 2006154538

PATIENT
  Sex: Female

DRUGS (1)
  1. PHENYTOIN SODIUM [Suspect]
     Indication: STATUS EPILEPTICUS
     Dosage: INTRAVENOUS
     Route: 042

REACTIONS (3)
  - ANTICONVULSANT DRUG LEVEL DECREASED [None]
  - BLOOD ALBUMIN DECREASED [None]
  - STATUS EPILEPTICUS [None]
